FAERS Safety Report 14187174 (Version 1)
Quarter: 2017Q4

REPORT INFORMATION
  Report Type: Report from Study
  Country: BG (occurrence: BG)
  Receive Date: 20171114
  Receipt Date: 20171114
  Transmission Date: 20180321
  Serious: Yes (Other)
  Sender: FDA-Public Use
  Company Number: BG-B.I. PHARMACEUTICALS,INC./RIDGEFIELD-2017-BI-060318

PATIENT
  Age: 65 Year
  Sex: Female
  Weight: 96 kg

DRUGS (4)
  1. METFODIAB (850 MG ? 30) [Concomitant]
     Indication: TYPE 2 DIABETES MELLITUS
     Dosage: STRENGTH: 850 MG ? 30
     Route: 065
  2. JARDIANCE [Suspect]
     Active Substance: EMPAGLIFLOZIN
     Indication: DIABETIC NEUROPATHY
     Route: 065
     Dates: start: 20170622
  3. L-THYROXIN 50 MG (EUTHYROX) [Concomitant]
     Indication: HYPOTHYROIDISM
     Route: 065
  4. JARDIANCE [Suspect]
     Active Substance: EMPAGLIFLOZIN
     Dates: start: 20171102

REACTIONS (3)
  - Pruritus genital [Unknown]
  - Genital infection [Unknown]
  - Flushing [Unknown]

NARRATIVE: CASE EVENT DATE: 20171022
